FAERS Safety Report 12296340 (Version 2)
Quarter: 2016Q2

REPORT INFORMATION
  Report Type: Spontaneous
  Country: JP (occurrence: JP)
  Receive Date: 20160422
  Receipt Date: 20160429
  Transmission Date: 20160815
  Serious: Yes (Other)
  Sender: FDA-Public Use
  Company Number: JP-009507513-1604JPN014070

PATIENT

DRUGS (3)
  1. REBETOL [Suspect]
     Active Substance: RIBAVIRIN
     Indication: CHRONIC HEPATITIS C
     Dosage: TOTAL DOSE 600-1000 MG (DEPENDING ON BODY WEIGHT), TWICE A DAY, FOR 24-48 WEEKS
     Route: 048
  2. FERON [Suspect]
     Active Substance: INTERFERON BETA
     Dosage: 6 MU THREE TIMES A WEEK, FOR THE REMAINING 20-44 WEEKS
     Route: 042
  3. FERON [Suspect]
     Active Substance: INTERFERON BETA
     Indication: CHRONIC HEPATITIS C
     Dosage: 6 MU DAILY, FOR THE FIRST 4 WEEKS
     Route: 042

REACTIONS (1)
  - Hepatocellular carcinoma [Unknown]
